FAERS Safety Report 8534523-0 (Version None)
Quarter: 2012Q3

REPORT INFORMATION
  Report Type: 
  Country: None (occurrence: None)
  Receive Date: 20120724
  Receipt Date: 20120716
  Transmission Date: 20120928
  Serious: Yes (Other)
  Sender: FDA-Public Use
  Company Number: US-BAYER-2012-001170

PATIENT
  Age: 56 Year
  Sex: Female

DRUGS (17)
  1. SENSIPAR [Concomitant]
     Indication: DIALYSIS
     Dosage: 90 MG, QD
  2. OPTIMARK [Suspect]
     Indication: NUCLEAR MAGNETIC RESONANCE IMAGING BRAIN
     Dosage: 15 ML, ONCE
     Route: 042
     Dates: start: 20060602, end: 20060602
  3. RENVELA [Concomitant]
     Indication: DIALYSIS
     Dosage: QID WITH MEALS
  4. PROGRAF [Concomitant]
  5. PREDNISONE [Concomitant]
  6. PROCRIT [Concomitant]
     Dosage: 1 U, TIW
  7. PHOSLO [Concomitant]
     Dosage: 667 MG, UNK
     Route: 048
  8. OPTIMARK [Suspect]
     Indication: MUSCULAR WEAKNESS
  9. OPTIMARK [Suspect]
     Indication: HEADACHE
  10. LANTUS [Concomitant]
     Indication: DIABETES MELLITUS
     Dosage: 20 U, QD
     Dates: start: 20050401
  11. GADOLINIUM IN UNSPECIFIED DRUG [Suspect]
     Indication: NUCLEAR MAGNETIC RESONANCE IMAGING
     Dosage: UNK
     Dates: start: 19990528, end: 19990528
  12. MAGNEVIST [Suspect]
     Indication: RENAL MASS
  13. OPTIMARK [Suspect]
     Indication: DISORIENTATION
  14. MAGNEVIST [Suspect]
     Indication: NUCLEAR MAGNETIC RESONANCE IMAGING ABDOMINAL
     Dosage: UNK
     Route: 042
     Dates: start: 20040521, end: 20040521
  15. SLOW RELEASE IRON [Concomitant]
     Dosage: 250 MG, BID
     Route: 048
  16. ATENOLOL [Concomitant]
  17. NEPHROVITE [VIT C,VIT H,B5,B12,B9,B3,B6,B2,B1 HCL] [Concomitant]
     Dosage: 1 DF, QD
     Route: 048

REACTIONS (30)
  - ARTHRALGIA [None]
  - DRY SKIN [None]
  - JOINT RANGE OF MOTION DECREASED [None]
  - EXTREMITY CONTRACTURE [None]
  - EPHELIDES [None]
  - PIGMENTATION DISORDER [None]
  - MUSCLE CONTRACTURE [None]
  - JOINT STIFFNESS [None]
  - EMOTIONAL DISTRESS [None]
  - NEPHROGENIC SYSTEMIC FIBROSIS [None]
  - MUSCULAR WEAKNESS [None]
  - SKIN TIGHTNESS [None]
  - MOBILITY DECREASED [None]
  - PAIN IN EXTREMITY [None]
  - GENERAL PHYSICAL HEALTH DETERIORATION [None]
  - ANHEDONIA [None]
  - ABASIA [None]
  - MUSCULOSKELETAL STIFFNESS [None]
  - JOINT CONTRACTURE [None]
  - RASH [None]
  - PRURITUS [None]
  - MUSCULOSKELETAL PAIN [None]
  - INJURY [None]
  - SCAR [None]
  - FIBROSIS [None]
  - OEDEMA PERIPHERAL [None]
  - PAIN [None]
  - DEPRESSION [None]
  - SKIN DISORDER [None]
  - ANXIETY [None]
